FAERS Safety Report 19657092 (Version 2)
Quarter: 2021Q3

REPORT INFORMATION
  Report Type: Spontaneous
  Country: PT (occurrence: PT)
  Receive Date: 20210804
  Receipt Date: 20210917
  Transmission Date: 20211014
  Serious: Yes (Disabling)
  Sender: FDA-Public Use
  Company Number: PT-PFIZER INC-202100939157

PATIENT
  Age: 40 Year
  Sex: Female
  Weight: 64 kg

DRUGS (5)
  1. CETOROLAC [Suspect]
     Active Substance: KETOROLAC TROMETHAMINE
     Dosage: UNK
     Route: 048
     Dates: start: 20210430, end: 20210504
  2. SIBILLA [Concomitant]
     Active Substance: DIENOGEST\ETHINYL ESTRADIOL
     Indication: TENDON DISORDER
     Dosage: UNK
  3. PIROXICAM. [Suspect]
     Active Substance: PIROXICAM
     Indication: TENDON DISORDER
     Dosage: 20 MG
     Route: 030
     Dates: start: 20210429, end: 20210429
  4. CETOROLAC [Suspect]
     Active Substance: KETOROLAC TROMETHAMINE
     Indication: TENDON DISORDER
     Dosage: 30 MG, 1X/DAY
     Route: 040
     Dates: start: 20210429, end: 20210430
  5. HYALART [Suspect]
     Active Substance: HYALURONATE SODIUM
     Indication: TENDON DISORDER
     Dosage: 30 MG
     Route: 014
     Dates: start: 20210429, end: 20210429

REACTIONS (1)
  - Herpes zoster [Unknown]

NARRATIVE: CASE EVENT DATE: 20210509
